FAERS Safety Report 26131270 (Version 1)
Quarter: 2025Q4

REPORT INFORMATION
  Report Type: Spontaneous
  Country: TR (occurrence: TR)
  Receive Date: 20251208
  Receipt Date: 20251208
  Transmission Date: 20260118
  Serious: Yes (Other)
  Sender: IPSEN BIOPHARMACEUTICALS, INC.
  Company Number: TR-IPSEN Group, Research and Development-2025-29841

PATIENT
  Age: 60 Year
  Sex: Male

DRUGS (1)
  1. BOTULINUM TOXIN TYPE A [Suspect]
     Active Substance: BOTULINUM TOXIN TYPE A
     Indication: Oromandibular dystonia
     Dosage: 25 U TO THE GENIOGLOSSUS, 20 U TO THE LATERAL PTERYGOIDS

REACTIONS (5)
  - Cerebellar atrophy [Unknown]
  - Deafness neurosensory [Unknown]
  - Ataxia [Unknown]
  - Off label use [Unknown]
  - Drug effective for unapproved indication [Unknown]
